FAERS Safety Report 6734692-9 (Version None)
Quarter: 2010Q2

REPORT INFORMATION
  Report Type: 
  Country: None (occurrence: None)
  Receive Date: 20100519
  Receipt Date: 20100519
  Transmission Date: 20101027
  Serious: Yes (Other)
  Sender: FDA-Public Use
  Company Number: None

PATIENT
  Age: 78 Year
  Sex: Male
  Weight: 95.5 kg

DRUGS (3)
  1. DEXILANT [Suspect]
     Indication: EROSIVE DUODENITIS
     Dosage: 60 MG DAILY PO
     Route: 048
     Dates: start: 20100413, end: 20100421
  2. VYTORIN [Concomitant]
  3. HCTZ [Concomitant]

REACTIONS (1)
  - HEPATITIS [None]
